FAERS Safety Report 5517438-1 (Version None)
Quarter: 2007Q4

REPORT INFORMATION
  Report Type: 
  Country: None (occurrence: None)
  Receive Date: 20071114
  Receipt Date: 20071108
  Transmission Date: 20080405
  Serious: Yes (Other)
  Sender: FDA-Public Use
  Company Number: CA-ASTRAZENECA-2007UW26047

PATIENT
  Age: 76 Year
  Sex: Male

DRUGS (8)
  1. XYLOCAINE [Suspect]
     Route: 047
  2. D.O.R.C. VISION BLUE [Suspect]
     Route: 047
  3. PHENYLEPHRINE HCL [Suspect]
     Route: 047
  4. PREDNISOLONE [Suspect]
     Route: 047
  5. PROVIODINE [Suspect]
     Route: 047
  6. TETRACAINE [Suspect]
     Route: 047
  7. TROPICAMIDE [Suspect]
     Route: 047
  8. ZYMAR [Suspect]
     Route: 047

REACTIONS (1)
  - INFLAMMATION [None]
